FAERS Safety Report 9111598 (Version 1)
Quarter: 2013Q1

REPORT INFORMATION
  Report Type: Spontaneous
  Country: US (occurrence: US)
  Receive Date: 20130219
  Receipt Date: 20130219
  Transmission Date: 20140127
  Serious: No
  Sender: FDA-Public Use
  Company Number: US-BRISTOL-MYERS SQUIBB COMPANY-16570715

PATIENT
  Age: 59 Year
  Sex: Female
  Weight: 65.76 kg

DRUGS (1)
  1. ORENCIA [Suspect]
     Indication: ARTHRITIS
     Dosage: LAST DOSE ON 25APR12
     Route: 042

REACTIONS (4)
  - Arthralgia [Unknown]
  - Pain in extremity [Unknown]
  - Fatigue [Unknown]
  - Contusion [Unknown]
